FAERS Safety Report 14433804 (Version 2)
Quarter: 2018Q2

REPORT INFORMATION
  Report Type: Spontaneous
  Country: NL (occurrence: NL)
  Receive Date: 20180124
  Receipt Date: 20180530
  Transmission Date: 20180711
  Serious: Yes (Death, Life-Threatening, Hospitalization)
  Sender: FDA-Public Use
  Company Number: NL-MYLANLABS-2018M1004397

PATIENT
  Age: 64 Year
  Sex: Male

DRUGS (17)
  1. THIAMINE. [Concomitant]
     Active Substance: THIAMINE
     Indication: WERNICKE^S ENCEPHALOPATHY
     Dosage: UNK
     Route: 065
  2. SODIUM CHLORIDE. [Suspect]
     Active Substance: SODIUM CHLORIDE
     Dosage: 2000 ML, UNK
     Route: 042
  3. RINGERS LACTATE [Suspect]
     Active Substance: CALCIUM CHLORIDE\POTASSIUM CHLORIDE\SODIUM LACTATE
     Indication: INTERNAL HAEMORRHAGE
     Dosage: 500 ML, UNK
     Route: 042
  4. SODIUM CHLORIDE. [Suspect]
     Active Substance: SODIUM CHLORIDE
     Indication: BLOOD SODIUM INCREASED
     Dosage: 1500 ML, UNK
     Route: 042
  5. POTASSIUM CHLORIDE. [Suspect]
     Active Substance: POTASSIUM CHLORIDE
     Indication: PRODUCT USED FOR UNKNOWN INDICATION
     Dosage: UNK
     Route: 042
  6. GLUCOSE [Suspect]
     Active Substance: DEXTROSE
     Indication: INTERNAL HAEMORRHAGE
     Dosage: 5 %, UNK
     Route: 041
  7. ENALAPRIL [Suspect]
     Active Substance: ENALAPRIL
     Indication: PRODUCT USED FOR UNKNOWN INDICATION
     Dosage: ENALAPRIL 20 MG HYDROCHLOROTHIAZIDE 12.5 MG
     Route: 065
  8. POTASSIUM CHLORIDE. [Suspect]
     Active Substance: POTASSIUM CHLORIDE
     Indication: INTERNAL HAEMORRHAGE
  9. VITAMIN B [Concomitant]
     Active Substance: VITAMIN B
     Indication: WERNICKE^S ENCEPHALOPATHY
     Dosage: UNK
     Route: 065
  10. AMOXICILLIN CLAVULANIC ACID [Concomitant]
     Active Substance: AMOXICILLIN\CLAVULANIC ACID
     Indication: SEPSIS
     Route: 065
  11. SODIUM CHLORIDE. [Suspect]
     Active Substance: SODIUM CHLORIDE
     Dosage: 500 ML, UNK
  12. NATRIUM CHLORIDUM [Suspect]
     Active Substance: SODIUM CHLORIDE
     Indication: INTERNAL HAEMORRHAGE
     Route: 042
  13. ASCORBIC ACID. [Concomitant]
     Active Substance: ASCORBIC ACID
     Indication: WERNICKE^S ENCEPHALOPATHY
     Dosage: UNK
     Route: 065
  14. SODIUM CHLORIDE. [Suspect]
     Active Substance: SODIUM CHLORIDE
     Indication: INTERNAL HAEMORRHAGE
     Dosage: 0.45 %, UNK
     Route: 042
  15. GLUCOSE [Suspect]
     Active Substance: DEXTROSE
     Dosage: 2.5 %, UNK
     Route: 042
  16. TOBRAMYCIN. [Concomitant]
     Active Substance: TOBRAMYCIN
     Indication: SEPSIS
     Dosage: UNK
     Route: 065
  17. NATRIUM CHLORIDUM [Suspect]
     Active Substance: SODIUM CHLORIDE
     Dosage: 500 ML, UNK
     Route: 042

REACTIONS (14)
  - Balance disorder [Fatal]
  - Hypokalaemia [Fatal]
  - Osmotic demyelination syndrome [Fatal]
  - Hepatic enzyme increased [Fatal]
  - Tremor [Fatal]
  - Neurological decompensation [Fatal]
  - Hyponatraemia [Fatal]
  - Speech disorder [Fatal]
  - Locked-in syndrome [Fatal]
  - Eyelid ptosis [Fatal]
  - Hypovolaemia [Fatal]
  - Acute kidney injury [Fatal]
  - Dysphagia [Fatal]
  - Ataxia [Fatal]
